FAERS Safety Report 9316130 (Version 1)
Quarter: 2013Q2

REPORT INFORMATION
  Report Type: Spontaneous
  Country: GR (occurrence: GR)
  Receive Date: 20130530
  Receipt Date: 20130530
  Transmission Date: 20140414
  Serious: Yes (Other)
  Sender: FDA-Public Use
  Company Number: GR-AMGEN-GRCSP2013037373

PATIENT
  Age: 58 Year
  Sex: Female

DRUGS (2)
  1. PROLIA [Suspect]
     Indication: OSTEOPOROSIS
     Dosage: 60 MG, Q6MO
     Dates: start: 201202
  2. PROLIA [Suspect]

REACTIONS (2)
  - Osteonecrosis of jaw [Not Recovered/Not Resolved]
  - Tooth disorder [Unknown]
